FAERS Safety Report 11586680 (Version 9)
Quarter: 2019Q2

REPORT INFORMATION
  Report Type: Spontaneous
  Country: US (occurrence: US)
  Receive Date: 20151001
  Receipt Date: 20190620
  Transmission Date: 20190711
  Serious: Yes (Other)
  Sender: FDA-Public Use
  Company Number: US-PFIZER INC-2015319444

PATIENT
  Age: 63 Year
  Sex: Female
  Weight: 43.89 kg

DRUGS (5)
  1. RELPAX [Suspect]
     Active Substance: ELETRIPTAN HYDROBROMIDE
     Dosage: 40 MG, AS NEEDED(40MG FILM-COATED TABLET-1/2 FILM-COATED TABLET TAKEN BY MOUTH AS NEEDED)
     Route: 048
  2. VITAMIN C [Concomitant]
     Active Substance: ASCORBIC ACID
  3. TYLENOL [Concomitant]
     Active Substance: ACETAMINOPHEN
     Indication: MIGRAINE
  4. RELPAX [Suspect]
     Active Substance: ELETRIPTAN HYDROBROMIDE
     Indication: MIGRAINE
     Dosage: 20 MG, AS NEEDED
  5. RELPAX [Suspect]
     Active Substance: ELETRIPTAN HYDROBROMIDE
     Indication: HEADACHE
     Dosage: 40 MG, AS NEEDED (IF NO RESPONSE REPEAT ONCE AFTER 2 HRS/MAX)

REACTIONS (12)
  - Disturbance in attention [Unknown]
  - Malaise [Unknown]
  - Sleep disorder [Unknown]
  - Cataract [Unknown]
  - Body height decreased [Unknown]
  - Bone density decreased [Unknown]
  - Fatigue [Recovering/Resolving]
  - Brain neoplasm [Unknown]
  - Blood cholesterol increased [Unknown]
  - Visual impairment [Not Recovered/Not Resolved]
  - Affective disorder [Unknown]
  - Drug ineffective [Unknown]

NARRATIVE: CASE EVENT DATE: 201809
